FAERS Safety Report 4857802-7 (Version None)
Quarter: 2005Q4

REPORT INFORMATION
  Report Type: 
  Country: None (occurrence: None)
  Receive Date: 20051219
  Receipt Date: 20050406
  Transmission Date: 20060501
  Serious: No
  Sender: FDA-Public Use
  Company Number: US-GLAXOSMITHKLINE-A0552966A

PATIENT
  Age: 51 Year
  Sex: Male

DRUGS (1)
  1. NICODERM CQ [Suspect]
     Dates: start: 20050406, end: 20050406

REACTIONS (2)
  - APPLICATION SITE PRURITUS [None]
  - APPLICATION SITE SWELLING [None]
